FAERS Safety Report 17835070 (Version 1)
Quarter: 2020Q2

REPORT INFORMATION
  Report Type: Spontaneous
  Country: US (occurrence: US)
  Receive Date: 20200528
  Receipt Date: 20200528
  Transmission Date: 20200714
  Serious: No
  Sender: FDA-Public Use
  Company Number: US-TEVA-2019-US-1073726

PATIENT

DRUGS (7)
  1. GABAPENTIN. [Concomitant]
     Active Substance: GABAPENTIN
     Dosage: EVERY 3 NIGHTS
  2. BIEST [Concomitant]
     Active Substance: ESTRADIOL\ESTRIOL
  3. ESTRADIOL. [Suspect]
     Active Substance: ESTRADIOL
     Dosage: RETOOK 2 DOSES
     Route: 065
     Dates: end: 201905
  4. TROCHE [Concomitant]
  5. MEDROXYPROGESTERONE [Concomitant]
     Active Substance: MEDROXYPROGESTERONE
  6. PROMETRA [Concomitant]
  7. ESTRADIOL. [Suspect]
     Active Substance: ESTRADIOL
     Indication: HORMONE REPLACEMENT THERAPY
     Dosage: 2016 OR EARLIER, SAME NDC
     Route: 065

REACTIONS (1)
  - Rash pruritic [Recovered/Resolved]
